FAERS Safety Report 9608390 (Version 2)
Quarter: 2014Q3

REPORT INFORMATION
  Report Type: Report from Study
  Country: MX (occurrence: MX)
  Receive Date: 20131009
  Receipt Date: 20140708
  Transmission Date: 20150326
  Serious: No
  Sender: FDA-Public Use
  Company Number: PHHY2013MX110771

PATIENT
  Age: 75 Year
  Sex: Female

DRUGS (3)
  1. KARET [Concomitant]
     Indication: THYROID DISORDER
     Dosage: 1 DF, DAILY
     Dates: start: 201307
  2. ASPIRIN PROTECT [Concomitant]
     Active Substance: ASPIRIN
     Indication: CARDIAC DISORDER
     Dosage: 1 DF, DAILY
     Dates: start: 200802
  3. EXFORGE HCT [Suspect]
     Active Substance: AMLODIPINE BESYLATE\HYDROCHLOROTHIAZIDE\VALSARTAN
     Indication: HYPERTENSION
     Dosage: 1 DF, (160 MG VALS, 5 MG AMLO AND 12.5 MG HCTZ), DAILY
     Route: 048
     Dates: start: 200802

REACTIONS (6)
  - Mouth haemorrhage [Recovered/Resolved]
  - Blood cholesterol increased [Unknown]
  - Headache [Recovered/Resolved]
  - Dizziness [Recovered/Resolved]
  - Epistaxis [Recovered/Resolved]
  - Discomfort [Recovered/Resolved]

NARRATIVE: CASE EVENT DATE: 201306
